FAERS Safety Report 6525551-5 (Version None)
Quarter: 2009Q4

REPORT INFORMATION
  Report Type: 
  Country: None (occurrence: None)
  Receive Date: 20091224
  Receipt Date: 20091214
  Transmission Date: 20100525
  Serious: Yes (Other)
  Sender: FDA-Public Use
  Company Number: 2009AL007864

PATIENT
  Age: 55 Year
  Sex: Female

DRUGS (4)
  1. RAMIPRIL [Suspect]
     Indication: HYPERTENSION
     Dosage: 5 MG; PO
     Route: 048
     Dates: start: 20060928, end: 20080730
  2. BECLOMETASONE [Concomitant]
  3. BENDROFLUMETHIAZIDE [Concomitant]
  4. ALBUTEROL [Concomitant]

REACTIONS (1)
  - ALOPECIA [None]
